FAERS Safety Report 24742912 (Version 1)
Quarter: 2024Q4

REPORT INFORMATION
  Report Type: Spontaneous
  Country: BE (occurrence: BE)
  Receive Date: 20241217
  Receipt Date: 20241217
  Transmission Date: 20250115
  Serious: Yes (Death)
  Sender: GENMAB
  Company Number: BE-ABBVIE-6048187

PATIENT
  Age: 70 Year

DRUGS (1)
  1. EPCORITAMAB [Suspect]
     Active Substance: EPCORITAMAB
     Indication: Product used for unknown indication
     Dosage: UNK
     Route: 058

REACTIONS (3)
  - Respiratory distress [Fatal]
  - HIV infection [Unknown]
  - Chronic obstructive pulmonary disease [Unknown]
